FAERS Safety Report 7024121-2 (Version None)
Quarter: 2010Q4

REPORT INFORMATION
  Report Type: 
  Country: None (occurrence: None)
  Receive Date: 20101001
  Receipt Date: 20100923
  Transmission Date: 20110411
  Serious: Yes (Congenital Anomaly)
  Sender: FDA-Public Use
  Company Number: DK-ROCHE-663763

PATIENT
  Sex: Female

DRUGS (2)
  1. HERCEPTIN [Suspect]
     Indication: BREAST CANCER
     Dosage: LOADING DOSE
     Route: 064
     Dates: start: 20081125, end: 20081125
  2. HERCEPTIN [Suspect]
     Dosage: RECEIVED 3 COURSES ON 25 AUGUST 2009, 15 SEPTEMBER 2009, 05 OCTOBER 2009.
     Route: 064
     Dates: start: 20081216, end: 20091005

REACTIONS (2)
  - DEAFNESS BILATERAL [None]
  - DRUG EXPOSURE DURING PREGNANCY [None]
